FAERS Safety Report 12643487 (Version 2)
Quarter: 2016Q3

REPORT INFORMATION
  Report Type: Spontaneous
  Country: IT (occurrence: IT)
  Receive Date: 20160811
  Receipt Date: 20160926
  Transmission Date: 20161109
  Serious: Yes (Other)
  Sender: FDA-Public Use
  Company Number: IT-TEVA-682632ACC

PATIENT

DRUGS (2)
  1. METHOTREXATE. [Suspect]
     Active Substance: METHOTREXATE
  2. AZATHIOPRINE. [Suspect]
     Active Substance: AZATHIOPRINE

REACTIONS (2)
  - Pancreatitis relapsing [Unknown]
  - Pancreatitis [Unknown]
